FAERS Safety Report 8038047-9 (Version None)
Quarter: 2012Q1

REPORT INFORMATION
  Report Type: 
  Country: None (occurrence: None)
  Receive Date: 20120111
  Receipt Date: 20120103
  Transmission Date: 20120608
  Serious: Yes (Hospitalization, Other)
  Sender: FDA-Public Use
  Company Number: FR-RB-035686-11

PATIENT
  Sex: Male
  Weight: 55 kg

DRUGS (2)
  1. SUBUTEX [Suspect]
     Indication: DRUG DEPENDENCE
     Dosage: UNKNOWN
     Route: 060
  2. SUBUTEX [Suspect]
     Dosage: 12 MG
     Route: 045
     Dates: end: 20090101

REACTIONS (16)
  - AFFECTIVE DISORDER [None]
  - HOMICIDAL IDEATION [None]
  - HALLUCINATIONS, MIXED [None]
  - AFFECT LABILITY [None]
  - MENTAL DISORDER [None]
  - PARANOID PERSONALITY DISORDER [None]
  - IMPULSIVE BEHAVIOUR [None]
  - AUTOMATISM, COMMAND [None]
  - INCORRECT ROUTE OF DRUG ADMINISTRATION [None]
  - DEPERSONALISATION [None]
  - AGGRESSION [None]
  - AMNESIA [None]
  - DEREALISATION [None]
  - AGITATION [None]
  - DELUSIONAL DISORDER, PERSECUTORY TYPE [None]
  - THERAPY CESSATION [None]
